FAERS Safety Report 4891794-X (Version None)
Quarter: 2006Q1

REPORT INFORMATION
  Report Type: 
  Country: None (occurrence: None)
  Receive Date: 20060123
  Receipt Date: 20060109
  Transmission Date: 20060701
  Serious: Yes (Hospitalization)
  Sender: FDA-Public Use
  Company Number: 2006P1000012

PATIENT

DRUGS (2)
  1. NICARDIPINE (NICARDIPINE) [Suspect]
     Indication: CEREBRAL HAEMORRHAGE
     Dosage: 2 MG; 1X; IV
     Route: 042
  2. TRANEXAMIC ACID (TRANEXAMIC ACID) [Suspect]
     Dosage: 1 GM; QD; IV
     Route: 042

REACTIONS (2)
  - RENAL IMPAIRMENT [None]
  - URINARY RETENTION [None]
